FAERS Safety Report 5723938-1 (Version None)
Quarter: 2008Q2

REPORT INFORMATION
  Report Type: 
  Country: None (occurrence: None)
  Receive Date: 20080430
  Receipt Date: 20080425
  Transmission Date: 20081010
  Serious: Yes (Death, Hospitalization)
  Sender: FDA-Public Use
  Company Number: US-SANOFI-SYNTHELABO-F01200501479

PATIENT
  Sex: Male

DRUGS (5)
  1. OXALIPLATIN [Suspect]
     Indication: COLON CANCER
     Route: 042
     Dates: start: 20050329, end: 20050329
  2. GLUCOPHAGE [Suspect]
     Indication: DIABETES MELLITUS
     Dosage: UNKNOWN
  3. LEUCOVORIN CALCIUM [Suspect]
     Indication: COLON CANCER
     Route: 042
     Dates: start: 20050329, end: 20050329
  4. FLUOROURACIL [Suspect]
     Indication: COLON CANCER
     Dosage: 400 MG/M2 1 X PER 2 WEEKS
     Route: 042
     Dates: start: 20050329, end: 20050329
  5. BEVACIZUMAB [Suspect]
     Indication: COLON CANCER
     Route: 042
     Dates: start: 20050329, end: 20050329

REACTIONS (5)
  - DISEASE PROGRESSION [None]
  - EMBOLISM [None]
  - HYPOGLYCAEMIA [None]
  - PNEUMONIA [None]
  - SUPERIOR VENA CAVAL OCCLUSION [None]
